FAERS Safety Report 23039039 (Version 1)
Quarter: 2023Q4

REPORT INFORMATION
  Report Type: Report from Study
  Country: FR (occurrence: FR)
  Receive Date: 20231006
  Receipt Date: 20231006
  Transmission Date: 20240110
  Serious: Yes (Hospitalization)
  Sender: FDA-Public Use
  Company Number: FR-JNJFOC-20230201564

PATIENT
  Age: 75 Year
  Sex: Female
  Weight: 49.5 kg

DRUGS (14)
  1. TALQUETAMAB [Suspect]
     Active Substance: TALQUETAMAB
     Indication: Plasma cell myeloma
     Route: 058
     Dates: start: 20220830, end: 20221130
  2. LOPERAMIDE [Concomitant]
     Active Substance: LOPERAMIDE
     Indication: Diarrhoea
     Route: 048
     Dates: start: 20220830
  3. ONDANSETRON [Concomitant]
     Active Substance: ONDANSETRON
     Indication: Prophylaxis of nausea and vomiting
     Route: 048
     Dates: start: 20220830
  4. CIMETIDINE [Concomitant]
     Active Substance: CIMETIDINE
     Indication: Gastrointestinal disorder therapy
     Route: 048
     Dates: start: 20220830
  5. PHLOROGLUCINOL [Concomitant]
     Active Substance: PHLOROGLUCINOL
     Indication: Gastrointestinal disorder therapy
     Route: 042
     Dates: start: 20220830
  6. BACTRIM [Concomitant]
     Active Substance: SULFAMETHOXAZOLE\TRIMETHOPRIM
     Indication: Infection prophylaxis
     Route: 048
     Dates: start: 20220925
  7. VALACYCLOVIR HYDROCHLORIDE [Concomitant]
     Active Substance: VALACYCLOVIR HYDROCHLORIDE
     Indication: Infection prophylaxis
     Route: 048
     Dates: start: 20220925
  8. PURE BAKING SODA [Concomitant]
     Active Substance: SODIUM BICARBONATE
     Indication: Oral pain
     Route: 048
     Dates: start: 20220925
  9. PURE BAKING SODA [Concomitant]
     Active Substance: SODIUM BICARBONATE
     Indication: Dry mouth
  10. GLYCERIN\MINERAL OIL\PETROLATUM [Concomitant]
     Active Substance: GLYCERIN\MINERAL OIL\PETROLATUM
     Indication: Dry skin
     Route: 061
     Dates: start: 20220925
  11. MELATONIN [Concomitant]
     Active Substance: MELATONIN
     Indication: Insomnia
     Route: 048
     Dates: start: 20221017
  12. METOCLOPRAMIDE [Concomitant]
     Active Substance: METOCLOPRAMIDE
     Indication: Nausea
     Route: 048
     Dates: start: 20221114
  13. IMODIUM [Concomitant]
     Active Substance: LOPERAMIDE HYDROCHLORIDE
     Indication: Diarrhoea
     Route: 048
     Dates: start: 20221114
  14. ALGINIC ACID\ALUMINUM HYDROXIDE\MAGNESIUM TRISILICATE [Concomitant]
     Active Substance: ALGINIC ACID\ALUMINUM HYDROXIDE\MAGNESIUM TRISILICATE
     Indication: Gastrointestinal pain
     Route: 048
     Dates: start: 20221114

REACTIONS (1)
  - Ataxia [Recovered/Resolved]

NARRATIVE: CASE EVENT DATE: 20230127
